FAERS Safety Report 9303861 (Version 1)
Quarter: 2013Q1

REPORT INFORMATION
  Report Type: Spontaneous
  Country: US (occurrence: None)
  Receive Date: 20130122
  Receipt Date: 20130122
  Transmission Date: 20140127
  Serious: No
  Sender: FDA-Public Use
  Company Number: 2012-00195

PATIENT
  Age: 81 Year
  Sex: Female
  Weight: 70.31 kg

DRUGS (1)
  1. ZICAM COLD REMEDY PLUS ORAL MIST [Suspect]
     Indication: NASOPHARYNGITIS
     Dosage: 3-4 TIMES PER DAY ORALLY
     Dates: start: 20121202, end: 20121205

REACTIONS (2)
  - Anosmia [None]
  - Ageusia [None]
